FAERS Safety Report 12331962 (Version 2)
Quarter: 2016Q3

REPORT INFORMATION
  Report Type: Spontaneous
  Country: US (occurrence: US)
  Receive Date: 20160504
  Receipt Date: 20160714
  Transmission Date: 20161109
  Serious: No
  Sender: FDA-Public Use
  Company Number: US-PFIZER INC-2016230313

PATIENT
  Age: 69 Year
  Sex: Female

DRUGS (1)
  1. LATANOPROST. [Suspect]
     Active Substance: LATANOPROST
     Indication: ANGLE CLOSURE GLAUCOMA
     Dosage: 50 UG/ML
     Route: 047
     Dates: start: 20160418

REACTIONS (9)
  - Drug administration error [Not Recovered/Not Resolved]
  - Dizziness [Not Recovered/Not Resolved]
  - Disorientation [Not Recovered/Not Resolved]
  - Dry throat [Unknown]
  - Vertigo [Not Recovered/Not Resolved]
  - Tinnitus [Unknown]
  - Pyrexia [Unknown]
  - Dysgeusia [Unknown]
  - Disturbance in attention [Not Recovered/Not Resolved]

NARRATIVE: CASE EVENT DATE: 20160420
